FAERS Safety Report 8885524 (Version 3)
Quarter: 2012Q4

REPORT INFORMATION
  Report Type: 
  Country: BR (occurrence: BR)
  Receive Date: 20121101
  Receipt Date: 20121107
  Transmission Date: 20130627
  Serious: Yes (Other)
  Sender: FDA-Public Use
  Company Number: BR-PFIZER INC-2012270724

PATIENT
  Sex: Male

DRUGS (3)
  1. LIPITOR [Suspect]
     Indication: HIGH CHOLESTEROL
     Dosage: 20 mg, UNK
     Route: 048
     Dates: start: 2008
  2. OROXADIN [Suspect]
     Indication: BLOOD TRIGLYCERIDES INCREASED
     Dosage: 100 mg, UNK
     Route: 048
  3. ATORVASTATIN CALCIUM [Suspect]
     Indication: HIGH CHOLESTEROL
     Dosage: UNK

REACTIONS (8)
  - Aortic valve disease [Unknown]
  - Liver disorder [Unknown]
  - Myalgia [Not Recovered/Not Resolved]
  - Blood urea abnormal [Unknown]
  - Blood creatine phosphokinase increased [Not Recovered/Not Resolved]
  - Feeling abnormal [Unknown]
  - Malaise [Unknown]
  - Headache [Not Recovered/Not Resolved]
